FAERS Safety Report 6086094-9 (Version None)
Quarter: 2009Q1

REPORT INFORMATION
  Report Type: 
  Country: None (occurrence: None)
  Receive Date: 20090217
  Receipt Date: 20080520
  Transmission Date: 20090719
  Serious: Yes (Other)
  Sender: FDA-Public Use
  Company Number: MC200800202

PATIENT
  Age: 52 Year
  Sex: Female
  Weight: 43.5 kg

DRUGS (4)
  1. ANGIOMAX [Suspect]
     Indication: PERCUTANEOUS CORONARY INTERVENTION
     Dosage: 14 ML, BOLUS, INTRAVENOUS; 33 ML, HR, INTRAVENOUS
     Route: 040
     Dates: start: 20080423, end: 20080423
  2. ANGIOMAX [Suspect]
     Indication: PERCUTANEOUS CORONARY INTERVENTION
     Dosage: 14 ML, BOLUS, INTRAVENOUS; 33 ML, HR, INTRAVENOUS
     Route: 040
     Dates: start: 20080423, end: 20080423
  3. TICLID [Concomitant]
  4. ASPIRIN [Concomitant]

REACTIONS (2)
  - CHEST PAIN [None]
  - STENT OCCLUSION [None]
